FAERS Safety Report 19429180 (Version 1)
Quarter: 2021Q2

REPORT INFORMATION
  Report Type: Spontaneous
  Country: US (occurrence: US)
  Receive Date: 20210617
  Receipt Date: 20210617
  Transmission Date: 20210717
  Serious: Yes (Other)
  Sender: FDA-Public Use
  Company Number: US-SA-2021SA199829

PATIENT
  Age: 26 Year
  Sex: Female

DRUGS (1)
  1. DUPIXENT [Suspect]
     Active Substance: DUPILUMAB
     Indication: DERMATITIS ATOPIC
     Dosage: 600 MG OTHER
     Route: 058
     Dates: start: 20210601, end: 20210601

REACTIONS (2)
  - Vision blurred [Unknown]
  - Thrombosis [Unknown]

NARRATIVE: CASE EVENT DATE: 20210608
